FAERS Safety Report 16978304 (Version 1)
Quarter: 2019Q4

REPORT INFORMATION
  Report Type: Spontaneous
  Country: US (occurrence: US)
  Receive Date: 20190914
  Receipt Date: 20190914
  Transmission Date: 20200122
  Serious: Yes (Hospitalization)
  Sender: FDA-Public Use
  Company Number: None

PATIENT
  Age: 56 Year
  Sex: Female
  Weight: 53.6 kg

DRUGS (1)
  1. ASPIRIN. [Suspect]
     Active Substance: ASPIRIN

REACTIONS (5)
  - Therapy cessation [None]
  - Suicidal ideation [None]
  - Stress [None]
  - Anxiety [None]
  - Treatment noncompliance [None]

NARRATIVE: CASE EVENT DATE: 20190821
